FAERS Safety Report 10663635 (Version 1)
Quarter: 2014Q4

REPORT INFORMATION
  Report Type: Spontaneous
  Country: US (occurrence: US)
  Receive Date: 20141219
  Receipt Date: 20141219
  Transmission Date: 20150529
  Serious: No
  Sender: FDA-Public Use
  Company Number: US-009507513-1412USA006294

PATIENT
  Sex: Female

DRUGS (3)
  1. ISENTRESS [Suspect]
     Active Substance: RALTEGRAVIR POTASSIUM
     Dosage: 800 DAILY
     Route: 048
  2. ABACAVIR [Suspect]
     Active Substance: ABACAVIR
     Dosage: 600 DAILY
     Route: 048
  3. LAMIVUDINE. [Suspect]
     Active Substance: LAMIVUDINE
     Dosage: 300 DAILY
     Route: 048

REACTIONS (1)
  - Exposure during pregnancy [Recovered/Resolved]
